FAERS Safety Report 4411259-9 (Version None)
Quarter: 2004Q3

REPORT INFORMATION
  Report Type: 
  Country: None (occurrence: None)
  Receive Date: 20040727
  Receipt Date: 20040714
  Transmission Date: 20050211
  Serious: Yes (Death, Other)
  Sender: FDA-Public Use
  Company Number: 2004044715

PATIENT
  Age: 67 Year
  Sex: Male

DRUGS (1)
  1. DIFLUCAN [Suspect]
     Indication: FUNGAEMIA
     Dosage: 200 MG INTRAVENOUS
     Route: 042
     Dates: start: 20040623, end: 20040628

REACTIONS (5)
  - ELECTROCARDIOGRAM QT PROLONGED [None]
  - ELECTROLYTE IMBALANCE [None]
  - HAEMODIALYSIS [None]
  - PULSE WAVEFORM ABNORMAL [None]
  - VENTRICULAR TACHYCARDIA [None]
